FAERS Safety Report 5972914-2 (Version None)
Quarter: 2008Q4

REPORT INFORMATION
  Report Type: 
  Country: None (occurrence: None)
  Receive Date: 20081201
  Receipt Date: 20081119
  Transmission Date: 20090506
  Serious: Yes (Other)
  Sender: FDA-Public Use
  Company Number: PHHY2008JP29154

PATIENT
  Sex: Male

DRUGS (1)
  1. ZOMETA [Suspect]
     Indication: METASTASES TO BONE
     Dosage: 5 MG, QMO
     Route: 042
     Dates: start: 20080101, end: 20080701

REACTIONS (3)
  - BONE DISORDER [None]
  - OSTEONECROSIS [None]
  - TOOTH EXTRACTION [None]
